FAERS Safety Report 25857897 (Version 2)
Quarter: 2025Q4

REPORT INFORMATION
  Report Type: Spontaneous
  Country: CL (occurrence: CL)
  Receive Date: 20250929
  Receipt Date: 20251007
  Transmission Date: 20260118
  Serious: Yes (Life-Threatening, Hospitalization)
  Sender: ALKEM
  Company Number: None

PATIENT
  Age: 66 Year
  Sex: Male
  Weight: 65 kg

DRUGS (20)
  1. LINEZOLID [Interacting]
     Active Substance: LINEZOLID
     Indication: Antibiotic therapy
     Dosage: 600 MILLIGRAM, BID (EVERY 12 HOURS VIA A 1-HOUR INTERMITTENT INFUSION)
     Route: 042
  2. LINEZOLID [Interacting]
     Active Substance: LINEZOLID
     Indication: Pseudomonas infection
     Dosage: 600 MILLIGRAM, TID (EVERY 8 HOURS)
     Route: 042
  3. LINEZOLID [Interacting]
     Active Substance: LINEZOLID
     Indication: Peritonitis bacterial
     Dosage: 2400 MILLIGRAM, QD (CONTINUOUS INFUSION)
     Route: 065
  4. LINEZOLID [Interacting]
     Active Substance: LINEZOLID
     Indication: Enterococcal infection
     Dosage: 1800 MG/DAY (CONTINUOUS INFUSION)
     Route: 065
  5. LINEZOLID [Interacting]
     Active Substance: LINEZOLID
     Indication: Empyema
  6. LINEZOLID [Interacting]
     Active Substance: LINEZOLID
     Indication: Enterococcal infection
  7. FENTANYL [Interacting]
     Active Substance: FENTANYL
     Indication: Sedation
     Dosage: UNK
     Route: 065
  8. FENTANYL [Interacting]
     Active Substance: FENTANYL
     Indication: Pain management
  9. FENTANYL [Interacting]
     Active Substance: FENTANYL
     Indication: Analgesic therapy
  10. KETAMINE [Interacting]
     Active Substance: KETAMINE
     Indication: Sedation
     Dosage: UNK
     Route: 065
  11. KETAMINE [Interacting]
     Active Substance: KETAMINE
     Indication: Pain management
  12. KETAMINE [Interacting]
     Active Substance: KETAMINE
     Indication: Analgesic therapy
  13. ANIDULAFUNGIN [Concomitant]
     Active Substance: ANIDULAFUNGIN
     Indication: Bacterial infection
     Dosage: UNK
     Route: 065
  14. ANIDULAFUNGIN [Concomitant]
     Active Substance: ANIDULAFUNGIN
     Indication: Antibiotic therapy
  15. AZTREONAM [Concomitant]
     Active Substance: AZTREONAM
     Indication: Bacterial infection
     Dosage: UNK
     Route: 065
  16. AZTREONAM [Concomitant]
     Active Substance: AZTREONAM
     Indication: Antibiotic therapy
  17. AVIBACTAM SODIUM\CEFTAZIDIME [Concomitant]
     Active Substance: AVIBACTAM SODIUM\CEFTAZIDIME
     Indication: Bacterial infection
     Dosage: UNK
     Route: 065
  18. AVIBACTAM SODIUM\CEFTAZIDIME [Concomitant]
     Active Substance: AVIBACTAM SODIUM\CEFTAZIDIME
     Indication: Antibiotic therapy
  19. NOREPINEPHRINE [Concomitant]
     Active Substance: NOREPINEPHRINE
     Indication: Supportive care
     Dosage: UNK
     Route: 065
  20. PROPOFOL [Concomitant]
     Active Substance: PROPOFOL
     Indication: Sedation
     Dosage: UNK
     Route: 065

REACTIONS (9)
  - Antibiotic level above therapeutic [Recovered/Resolved]
  - Adrenergic syndrome [Recovered/Resolved]
  - Drug clearance decreased [Recovered/Resolved]
  - Drug interaction [Unknown]
  - Agitation [Unknown]
  - Tachycardia [Recovered/Resolved]
  - Pyrexia [Unknown]
  - Hypertension [Recovered/Resolved]
  - Treatment failure [Unknown]
